FAERS Safety Report 10405393 (Version 1)
Quarter: 2014Q3

REPORT INFORMATION
  Report Type: Spontaneous
  Country: US (occurrence: None)
  Receive Date: 20140821
  Receipt Date: 20140821
  Transmission Date: 20150326
  Serious: Yes (Hospitalization)
  Sender: FDA-Public Use
  Company Number: None

PATIENT
  Age: 11 Month
  Sex: Male
  Weight: 8.58 kg

DRUGS (3)
  1. DOXORUBICIN HYDROCHLORIDE. [Suspect]
     Active Substance: DOXORUBICIN HYDROCHLORIDE
  2. VINCRISTINE SULFATE. [Suspect]
     Active Substance: VINCRISTINE SULFATE
  3. DACTINOMYCIN [Suspect]
     Active Substance: DACTINOMYCIN

REACTIONS (2)
  - Renal failure acute [None]
  - Hypovolaemia [None]

NARRATIVE: CASE EVENT DATE: 20140809
